FAERS Safety Report 17150239 (Version 1)
Quarter: 2019Q4

REPORT INFORMATION
  Report Type: Spontaneous
  Country: US (occurrence: US)
  Receive Date: 20191213
  Receipt Date: 20191213
  Transmission Date: 20200122
  Serious: No
  Sender: FDA-Public Use
  Company Number: US-GLENMARK PHARMACEUTICALS-2019GMK043377

PATIENT

DRUGS (2)
  1. MOMETASONE FUROATE CREAM USP, 0.1% [Suspect]
     Active Substance: MOMETASONE FUROATE
     Dosage: UNK UNK, SINGLE
     Route: 067
     Dates: start: 20190920, end: 20190920
  2. MOMETASONE FUROATE CREAM USP, 0.1% [Suspect]
     Active Substance: MOMETASONE FUROATE
     Indication: SCAR
     Dosage: UNK, PRN
     Route: 061

REACTIONS (2)
  - Incorrect route of product administration [Unknown]
  - Product selection error [Unknown]

NARRATIVE: CASE EVENT DATE: 20190920
